FAERS Safety Report 25356153 (Version 1)
Quarter: 2025Q2

REPORT INFORMATION
  Report Type: Report from Study
  Country: US (occurrence: US)
  Receive Date: 20250525
  Receipt Date: 20250525
  Transmission Date: 20250716
  Serious: Yes (Other)
  Sender: BAUSCH AND LOMB
  Company Number: US-BAUSCHBL-2025BNL009203

PATIENT

DRUGS (1)
  1. XIIDRA [Suspect]
     Active Substance: LIFITEGRAST
     Indication: Product used for unknown indication
     Route: 047

REACTIONS (11)
  - Sjogren^s syndrome [Unknown]
  - Ankylosing spondylitis [Unknown]
  - Neuralgia [Unknown]
  - Small fibre neuropathy [Unknown]
  - Influenza [Unknown]
  - Insomnia [Unknown]
  - Sinus disorder [Unknown]
  - Scoliosis [Unknown]
  - Arthritis [Unknown]
  - Condition aggravated [Unknown]
  - Dry eye [Unknown]
